FAERS Safety Report 4721980-0 (Version None)
Quarter: 2005Q3

REPORT INFORMATION
  Report Type: 
  Country: None (occurrence: None)
  Receive Date: 20050722
  Receipt Date: 20050601
  Transmission Date: 20060218
  Serious: Yes (Other)
  Sender: FDA-Public Use
  Company Number: 2005GB01087

PATIENT
  Age: 54 Year
  Sex: Female

DRUGS (1)
  1. TENORETIC 100 [Suspect]
     Indication: HYPERTENSION
     Route: 048
     Dates: start: 20050509

REACTIONS (2)
  - DIARRHOEA [None]
  - HYPERTENSION [None]
